FAERS Safety Report 5676623-9 (Version None)
Quarter: 2008Q1

REPORT INFORMATION
  Report Type: 
  Country: None (occurrence: None)
  Receive Date: 20080320
  Receipt Date: 20080320
  Transmission Date: 20080703
  Serious: No
  Sender: FDA-Public Use
  Company Number: None

PATIENT
  Sex: Female

DRUGS (1)
  1. AMBIEN [Suspect]
     Indication: INSOMNIA
     Dosage: 5 MG ONE PO QHS PO
     Route: 048
     Dates: start: 20070101

REACTIONS (3)
  - SLEEP TERROR [None]
  - SOMNAMBULISM [None]
  - VOMITING [None]
